FAERS Safety Report 20266770 (Version 1)
Quarter: 2021Q4

REPORT INFORMATION
  Report Type: Spontaneous
  Country: DE (occurrence: DE)
  Receive Date: 20211231
  Receipt Date: 20211231
  Transmission Date: 20220303
  Serious: Yes (Congenital Anomaly, Other)
  Sender: FDA-Public Use
  Company Number: DE-EMBRYOTOX-202010058

PATIENT
  Age: 1 Day
  Sex: Female
  Weight: 3 kg

DRUGS (3)
  1. MESALAMINE [Suspect]
     Active Substance: MESALAMINE
     Indication: Proctitis ulcerative
     Route: 064
     Dates: start: 20200917, end: 20200927
  2. PROPOFOL [Concomitant]
     Active Substance: PROPOFOL
     Indication: Colonoscopy
     Dosage: 150 [MG/D ]
     Route: 064
     Dates: start: 20200820, end: 20200820
  3. MIDAZOLAM [Concomitant]
     Active Substance: MIDAZOLAM
     Indication: Colonoscopy
     Dosage: 2.5 [MG/D ]
     Route: 064
     Dates: start: 20200820, end: 20200820

REACTIONS (4)
  - Atrial septal defect [Unknown]
  - Oesophageal atresia [Unknown]
  - Patent ductus arteriosus [Unknown]
  - Foetal exposure during pregnancy [Unknown]

NARRATIVE: CASE EVENT DATE: 20210427
